FAERS Safety Report 6450674-9 (Version None)
Quarter: 2009Q4

REPORT INFORMATION
  Report Type: 
  Country: None (occurrence: None)
  Receive Date: 20091120
  Receipt Date: 20091120
  Transmission Date: 20100525
  Serious: No
  Sender: FDA-Public Use
  Company Number: None

PATIENT
  Age: 8 Year
  Sex: Male
  Weight: 22.6799 kg

DRUGS (1)
  1. TAMIFLU [Suspect]
     Indication: INFLUENZA
     Dosage: 5 ML TWICE A DAY PO
     Route: 048
     Dates: start: 20091103, end: 20091103

REACTIONS (9)
  - ANXIETY [None]
  - CONFUSIONAL STATE [None]
  - DISORIENTATION [None]
  - FEAR [None]
  - HALLUCINATION [None]
  - HYPERHIDROSIS [None]
  - PANIC DISORDER [None]
  - SLEEP TERROR [None]
  - VOMITING [None]
